FAERS Safety Report 9347934 (Version 2)
Quarter: 2014Q1

REPORT INFORMATION
  Report Type: Spontaneous
  Country: IT (occurrence: IT)
  Receive Date: 20130614
  Receipt Date: 20140203
  Transmission Date: 20141002
  Serious: Yes (Hospitalization)
  Sender: FDA-Public Use
  Company Number: IT-ACCORD-018031

PATIENT
  Age: 70 Year
  Sex: Male

DRUGS (2)
  1. LEVOFLOXACIN/LEVOFLOXACIN MESYLATE [Suspect]
     Indication: INFECTION
     Route: 048
     Dates: start: 20130501, end: 20130507
  2. GEMCITABINE/GEMCITABINE HYDROCHLORIDE [Suspect]
     Indication: PANCREATIC CARCINOMA
     Route: 042
     Dates: start: 20130101, end: 20130429

REACTIONS (4)
  - Oedema [Recovering/Resolving]
  - Renal failure [Recovering/Resolving]
  - Thrombotic microangiopathy [Recovering/Resolving]
  - Pleural effusion [Recovering/Resolving]
